FAERS Safety Report 7532624-7 (Version None)
Quarter: 2011Q2

REPORT INFORMATION
  Report Type: 
  Country: None (occurrence: None)
  Receive Date: 20110608
  Receipt Date: 20110530
  Transmission Date: 20111010
  Serious: Yes (Death, Life-Threatening, Other)
  Sender: FDA-Public Use
  Company Number: JP-CEPHALON-2011002834

PATIENT
  Sex: Male
  Weight: 44 kg

DRUGS (11)
  1. BENDAMUSTINE HCL [Suspect]
     Route: 042
     Dates: start: 20110324, end: 20110325
  2. PAROXETINE HCL [Concomitant]
     Dates: end: 20110518
  3. BENDAMUSTINE HCL [Suspect]
     Indication: B-CELL LYMPHOMA
     Route: 042
     Dates: start: 20110223, end: 20110224
  4. VALACYCLOVIR HCL [Concomitant]
  5. SULFAMETHOXAZOLE AND TRIMETHOPRIM [Concomitant]
     Dates: end: 20110518
  6. SULPRIDE [Concomitant]
     Dates: end: 20110518
  7. HYDROXYUREA [Concomitant]
     Dates: start: 20110317, end: 20110518
  8. BENDAMUSTINE HCL [Suspect]
     Route: 042
     Dates: start: 20110421, end: 20110421
  9. ALPRAZOLAM [Concomitant]
     Dates: end: 20110518
  10. BROTIZOLAM [Concomitant]
     Dates: end: 20110518
  11. ITRACONAZOLE [Concomitant]
     Dates: start: 20110317, end: 20110518

REACTIONS (6)
  - LIVER DISORDER [None]
  - WHITE BLOOD CELL COUNT DECREASED [None]
  - WHITE BLOOD CELL COUNT INCREASED [None]
  - PLATELET COUNT DECREASED [None]
  - ANAEMIA [None]
  - ELECTROLYTE IMBALANCE [None]
